FAERS Safety Report 10142569 (Version 2)
Quarter: 2014Q2

REPORT INFORMATION
  Report Type: Spontaneous
  Country: TW (occurrence: TW)
  Receive Date: 20140430
  Receipt Date: 20140509
  Transmission Date: 20141212
  Serious: Yes (Hospitalization)
  Sender: FDA-Public Use
  Company Number: TW-AMGEN INC.-TWNSP2014031234

PATIENT
  Age: 63 Year
  Sex: Female

DRUGS (2)
  1. ENBREL [Suspect]
     Indication: RHEUMATOID ARTHRITIS
     Dosage: 25 MG, BIW
     Route: 058
     Dates: start: 20140327, end: 20140402
  2. ENBREL [Suspect]
     Dosage: 25 MG, BIW
     Route: 058
     Dates: start: 20140423

REACTIONS (2)
  - Lower limb fracture [Recovered/Resolved]
  - Upper limb fracture [Recovered/Resolved]
